FAERS Safety Report 19376421 (Version 1)
Quarter: 2021Q2

REPORT INFORMATION
  Report Type: Report from Study
  Country: CA (occurrence: CA)
  Receive Date: 20210604
  Receipt Date: 20210604
  Transmission Date: 20210717
  Serious: Yes (Disabling, Other)
  Sender: FDA-Public Use
  Company Number: CA-BRISTOL-MYERS SQUIBB COMPANY-BMS-2021-053710

PATIENT
  Age: 78 Year
  Sex: Male

DRUGS (2)
  1. PROLIA [Concomitant]
     Active Substance: DENOSUMAB
     Indication: PRODUCT USED FOR UNKNOWN INDICATION
     Dosage: UNK
     Route: 065
     Dates: start: 20210504
  2. ABATACEPT [Suspect]
     Active Substance: ABATACEPT
     Indication: RHEUMATOID ARTHRITIS
     Dosage: 750 UNK, Q4WK
     Route: 042
     Dates: start: 20160607

REACTIONS (2)
  - Fall [Recovering/Resolving]
  - Upper limb fracture [Unknown]

NARRATIVE: CASE EVENT DATE: 20210518
